FAERS Safety Report 13964267 (Version 1)
Quarter: 2017Q3

REPORT INFORMATION
  Report Type: Spontaneous
  Country: US (occurrence: None)
  Receive Date: 20170913
  Receipt Date: 20170913
  Transmission Date: 20171128
  Serious: Yes (Other)
  Sender: FDA-Public Use
  Company Number: None

PATIENT
  Age: 61 Year
  Sex: Female
  Weight: 83.01 kg

DRUGS (1)
  1. ATORVASTATIN MYLAN [Suspect]
     Active Substance: ATORVASTATIN
     Route: 048
     Dates: start: 201701

REACTIONS (3)
  - Headache [None]
  - Vomiting [None]
  - Myalgia [None]

NARRATIVE: CASE EVENT DATE: 20170301
